FAERS Safety Report 18269719 (Version 8)
Quarter: 2024Q3

REPORT INFORMATION
  Report Type: Spontaneous
  Country: CA (occurrence: CA)
  Receive Date: 20200915
  Receipt Date: 20240912
  Transmission Date: 20241016
  Serious: Yes (Hospitalization, Other)
  Sender: BAUSCH AND LOMB
  Company Number: CA-BAUSCH-BL-2020-025906

PATIENT
  Age: 48 Year
  Sex: Female
  Weight: 106 kg

DRUGS (120)
  1. LORAZEPAM [Suspect]
     Active Substance: LORAZEPAM
     Indication: Tardive dyskinesia
     Dosage: NOT SPECIFIED
     Route: 048
  2. LORAZEPAM [Suspect]
     Active Substance: LORAZEPAM
     Route: 048
  3. LORAZEPAM [Suspect]
     Active Substance: LORAZEPAM
     Route: 048
  4. LORAZEPAM [Suspect]
     Active Substance: LORAZEPAM
     Route: 048
  5. LORAZEPAM [Suspect]
     Active Substance: LORAZEPAM
     Dosage: NOT SPECIFIED
     Route: 048
  6. LORAZEPAM [Suspect]
     Active Substance: LORAZEPAM
     Route: 048
  7. DEXAMETHASONE [Suspect]
     Active Substance: DEXAMETHASONE
     Indication: Supportive care
     Route: 048
  8. DEXAMETHASONE [Suspect]
     Active Substance: DEXAMETHASONE
     Dosage: NOT SPECIFIED
     Route: 048
  9. DEXAMETHASONE [Suspect]
     Active Substance: DEXAMETHASONE
     Indication: Supportive care
     Route: 048
  10. DEXAMETHASONE [Suspect]
     Active Substance: DEXAMETHASONE
     Route: 048
  11. DOXORUBICIN [Suspect]
     Active Substance: DOXORUBICIN
     Indication: Breast cancer female
     Dosage: SOLUTION?INTRAVENOUS
     Route: 042
  12. DOXORUBICIN [Suspect]
     Active Substance: DOXORUBICIN
     Route: 042
  13. DOXORUBICIN [Suspect]
     Active Substance: DOXORUBICIN
     Route: 042
  14. DOXORUBICIN [Suspect]
     Active Substance: DOXORUBICIN
     Route: 042
  15. DOXORUBICIN [Suspect]
     Active Substance: DOXORUBICIN
     Route: 042
  16. DOXORUBICIN [Suspect]
     Active Substance: DOXORUBICIN
     Route: 042
  17. DOXORUBICIN [Suspect]
     Active Substance: DOXORUBICIN
     Route: 042
  18. DOXORUBICIN [Suspect]
     Active Substance: DOXORUBICIN
     Dosage: DOXORUBICIN HYDROCHLORIDE
     Route: 042
  19. DOXORUBICIN [Suspect]
     Active Substance: DOXORUBICIN
     Route: 042
  20. ENOXAPARIN [Suspect]
     Active Substance: ENOXAPARIN
     Indication: Tardive dyskinesia
     Route: 058
  21. ENOXAPARIN [Suspect]
     Active Substance: ENOXAPARIN
     Route: 058
  22. ENOXAPARIN [Suspect]
     Active Substance: ENOXAPARIN
     Route: 058
  23. ENOXAPARIN [Suspect]
     Active Substance: ENOXAPARIN
     Route: 058
  24. FILGRASTIM [Suspect]
     Active Substance: FILGRASTIM
     Indication: Supportive care
     Route: 065
  25. FILGRASTIM [Suspect]
     Active Substance: FILGRASTIM
     Route: 065
  26. FILGRASTIM [Suspect]
     Active Substance: FILGRASTIM
     Route: 048
  27. FILGRASTIM [Suspect]
     Active Substance: FILGRASTIM
     Route: 048
  28. LEVOFLOXACIN [Suspect]
     Active Substance: LEVOFLOXACIN
     Indication: Tardive dyskinesia
     Route: 048
  29. LEVOFLOXACIN [Suspect]
     Active Substance: LEVOFLOXACIN
     Route: 048
  30. LEVOFLOXACIN [Suspect]
     Active Substance: LEVOFLOXACIN
     Dosage: NOT SPECIFIED
     Route: 048
  31. PACLITAXEL [Suspect]
     Active Substance: PACLITAXEL
     Indication: Breast cancer female
     Dosage: LIQUID INTRAVENOUS
     Route: 042
  32. PACLITAXEL [Suspect]
     Active Substance: PACLITAXEL
     Indication: Supportive care
     Dosage: LIQUID INTRAVENOUS
     Route: 042
  33. PACLITAXEL [Suspect]
     Active Substance: PACLITAXEL
     Route: 042
  34. PACLITAXEL [Suspect]
     Active Substance: PACLITAXEL
     Route: 042
  35. PACLITAXEL [Suspect]
     Active Substance: PACLITAXEL
     Dosage: SOLUTION FOR?INJECTION/INFUSION
     Route: 042
  36. PACLITAXEL [Suspect]
     Active Substance: PACLITAXEL
     Dosage: SOLUTION FOR?INJECTION/INFUSION
     Route: 042
  37. PACLITAXEL [Suspect]
     Active Substance: PACLITAXEL
     Dosage: SOLUTION FOR?INJECTION/INFUSION
     Route: 042
  38. PACLITAXEL [Suspect]
     Active Substance: PACLITAXEL
     Dosage: SOLUTION FOR?INJECTION/INFUSION
     Route: 042
  39. PACLITAXEL [Suspect]
     Active Substance: PACLITAXEL
     Dosage: SOLUTION FOR?INJECTION/INFUSION
     Route: 042
  40. PACLITAXEL [Suspect]
     Active Substance: PACLITAXEL
     Route: 042
  41. PACLITAXEL [Suspect]
     Active Substance: PACLITAXEL
     Route: 042
  42. PEGFILGRASTIM [Suspect]
     Active Substance: PEGFILGRASTIM
     Indication: Supportive care
     Route: 058
  43. CYCLOPHOSPHAMIDE [Suspect]
     Active Substance: CYCLOPHOSPHAMIDE
     Indication: Breast cancer female
     Route: 042
  44. CYCLOPHOSPHAMIDE [Suspect]
     Active Substance: CYCLOPHOSPHAMIDE
     Indication: Tardive dyskinesia
     Route: 065
  45. CYCLOPHOSPHAMIDE [Suspect]
     Active Substance: CYCLOPHOSPHAMIDE
     Route: 042
  46. CYCLOPHOSPHAMIDE [Suspect]
     Active Substance: CYCLOPHOSPHAMIDE
     Route: 042
  47. CYCLOPHOSPHAMIDE [Suspect]
     Active Substance: CYCLOPHOSPHAMIDE
     Route: 042
  48. RANITIDINE [Suspect]
     Active Substance: RANITIDINE
     Indication: Tardive dyskinesia
     Dosage: RANITIDINE HYDROCHLORIDE
     Route: 048
  49. RANITIDINE [Suspect]
     Active Substance: RANITIDINE
     Route: 048
  50. RANITIDINE [Suspect]
     Active Substance: RANITIDINE
     Route: 048
  51. RANITIDINE [Suspect]
     Active Substance: RANITIDINE
     Route: 048
  52. RANITIDINE [Suspect]
     Active Substance: RANITIDINE
     Dosage: RANITIDINE HYDROCHLORIDE
     Route: 048
  53. RANITIDINE [Suspect]
     Active Substance: RANITIDINE
     Dosage: RANITIDINE HYDROCHLORIDE
     Route: 048
  54. TRASTUZUMAB [Suspect]
     Active Substance: TRASTUZUMAB
     Indication: Tardive dyskinesia
     Route: 065
  55. TRASTUZUMAB [Suspect]
     Active Substance: TRASTUZUMAB
     Route: 065
  56. TRASTUZUMAB [Suspect]
     Active Substance: TRASTUZUMAB
     Route: 048
  57. TRASTUZUMAB [Suspect]
     Active Substance: TRASTUZUMAB
     Route: 065
  58. TRASTUZUMAB [Suspect]
     Active Substance: TRASTUZUMAB
     Route: 065
  59. TRASTUZUMAB [Suspect]
     Active Substance: TRASTUZUMAB
     Route: 065
  60. TRASTUZUMAB [Suspect]
     Active Substance: TRASTUZUMAB
     Route: 065
  61. TRASTUZUMAB [Suspect]
     Active Substance: TRASTUZUMAB
     Route: 065
  62. TYLENOL WITH CODEINE [Suspect]
     Active Substance: ACETAMINOPHEN\CODEINE PHOSPHATE
     Indication: Tardive dyskinesia
     Route: 065
  63. APREPITANT [Suspect]
     Active Substance: APREPITANT
     Indication: Supportive care
     Route: 048
  64. APREPITANT [Suspect]
     Active Substance: APREPITANT
     Route: 048
  65. APREPITANT [Suspect]
     Active Substance: APREPITANT
     Route: 048
  66. BETAMETHASONE [Suspect]
     Active Substance: BETAMETHASONE
     Indication: Tardive dyskinesia
     Route: 048
  67. BETAMETHASONE [Suspect]
     Active Substance: BETAMETHASONE
     Route: 065
  68. BETAMETHASONE [Suspect]
     Active Substance: BETAMETHASONE
     Route: 048
  69. BETAMETHASONE [Suspect]
     Active Substance: BETAMETHASONE
     Route: 065
  70. EMEND [Suspect]
     Active Substance: APREPITANT
     Indication: Supportive care
     Route: 048
  71. EMEND [Suspect]
     Active Substance: APREPITANT
     Route: 048
  72. EMEND [Suspect]
     Active Substance: APREPITANT
     Route: 048
  73. EMEND [Suspect]
     Active Substance: APREPITANT
     Route: 048
  74. EMEND [Suspect]
     Active Substance: APREPITANT
     Route: 048
  75. EMEND [Suspect]
     Active Substance: APREPITANT
     Route: 048
  76. EMEND [Suspect]
     Active Substance: APREPITANT
     Route: 048
  77. EMEND [Suspect]
     Active Substance: APREPITANT
     Route: 048
  78. METOCLOPRAMIDE [Suspect]
     Active Substance: METOCLOPRAMIDE
     Indication: Tardive dyskinesia
     Route: 048
  79. METOCLOPRAMIDE [Suspect]
     Active Substance: METOCLOPRAMIDE
     Route: 048
  80. METOCLOPRAMIDE [Suspect]
     Active Substance: METOCLOPRAMIDE
     Route: 048
  81. METOCLOPRAMIDE [Suspect]
     Active Substance: METOCLOPRAMIDE
     Route: 048
  82. METOCLOPRAMIDE [Suspect]
     Active Substance: METOCLOPRAMIDE
     Route: 048
  83. ACETAMINOPHEN\CODEINE PHOSPHATE [Suspect]
     Active Substance: ACETAMINOPHEN\CODEINE PHOSPHATE
     Indication: Tardive dyskinesia
     Dosage: ELIXIR
     Route: 065
  84. ACETAMINOPHEN\CODEINE PHOSPHATE [Suspect]
     Active Substance: ACETAMINOPHEN\CODEINE PHOSPHATE
     Dosage: 6 EVERY 1 DAYS
     Route: 065
  85. ACETAMINOPHEN\CODEINE PHOSPHATE [Suspect]
     Active Substance: ACETAMINOPHEN\CODEINE PHOSPHATE
     Dosage: ELIXIR
     Route: 065
  86. ACETAMINOPHEN\CODEINE PHOSPHATE [Suspect]
     Active Substance: ACETAMINOPHEN\CODEINE PHOSPHATE
     Route: 065
  87. NEULASTA [Suspect]
     Active Substance: PEGFILGRASTIM
     Indication: Supportive care
     Route: 058
  88. NEULASTA [Suspect]
     Active Substance: PEGFILGRASTIM
     Route: 058
  89. NEULASTA [Suspect]
     Active Substance: PEGFILGRASTIM
     Route: 058
  90. NEULASTA [Suspect]
     Active Substance: PEGFILGRASTIM
     Dosage: SOLUTION?SUBCUTANEOUS
     Route: 058
  91. NEULASTA [Suspect]
     Active Substance: PEGFILGRASTIM
     Route: 058
  92. NEULASTA [Suspect]
     Active Substance: PEGFILGRASTIM
     Route: 058
  93. NEULASTA [Suspect]
     Active Substance: PEGFILGRASTIM
     Route: 058
  94. NEUPOGEN [Suspect]
     Active Substance: FILGRASTIM
     Indication: Supportive care
     Dosage: SOLUTION INTRAVENOUS
     Route: 048
  95. NEUPOGEN [Suspect]
     Active Substance: FILGRASTIM
     Dosage: SOLUTION INTRAVENOUS
     Route: 065
  96. NEUPOGEN [Suspect]
     Active Substance: FILGRASTIM
     Dosage: SOLUTION INTRAVENOUS
     Route: 065
  97. NEUPOGEN [Suspect]
     Active Substance: FILGRASTIM
     Route: 048
  98. NEUPOGEN [Suspect]
     Active Substance: FILGRASTIM
     Route: 048
  99. NEUPOGEN [Suspect]
     Active Substance: FILGRASTIM
     Route: 065
  100. NEUPOGEN [Suspect]
     Active Substance: FILGRASTIM
     Route: 048
  101. NEUPOGEN [Suspect]
     Active Substance: FILGRASTIM
     Route: 065
  102. NEUPOGEN [Suspect]
     Active Substance: FILGRASTIM
     Route: 065
  103. NEUPOGEN [Suspect]
     Active Substance: FILGRASTIM
     Route: 065
  104. NEUPOGEN [Suspect]
     Active Substance: FILGRASTIM
     Route: 042
  105. NEUPOGEN [Suspect]
     Active Substance: FILGRASTIM
     Dosage: SOLUTION INTRAVENOUS
     Route: 048
  106. ONDANSETRON [Suspect]
     Active Substance: ONDANSETRON
     Indication: Supportive care
     Route: 048
  107. ONDANSETRON [Suspect]
     Active Substance: ONDANSETRON
     Route: 048
  108. ONDANSETRON [Suspect]
     Active Substance: ONDANSETRON
     Route: 065
  109. ONDANSETRON [Suspect]
     Active Substance: ONDANSETRON
     Route: 048
  110. ONDANSETRON [Suspect]
     Active Substance: ONDANSETRON
     Route: 048
  111. ONDANSETRON [Suspect]
     Active Substance: ONDANSETRON
     Route: 048
  112. ONDANSETRON [Suspect]
     Active Substance: ONDANSETRON
     Route: 048
  113. ONDANSETRON [Suspect]
     Active Substance: ONDANSETRON
     Route: 048
  114. ONDANSETRON [Suspect]
     Active Substance: ONDANSETRON
     Dosage: ONDANSETRON HYDROCHLORIDE
     Route: 048
  115. ONDANSETRON [Suspect]
     Active Substance: ONDANSETRON
     Dosage: ONDANSETRON HYDROCHLORIDE
     Route: 048
  116. ONDANSETRON [Suspect]
     Active Substance: ONDANSETRON
     Dosage: ONDANSETRON HYDROCHLORIDE
     Route: 065
  117. ONDANSETRON [Suspect]
     Active Substance: ONDANSETRON
     Dosage: ONDANSETRON HYDROCHLORIDE
     Route: 048
  118. CYCLOPHOSPHAMIDE [Suspect]
     Active Substance: CYCLOPHOSPHAMIDE
     Indication: Tardive dyskinesia
     Route: 042
  119. CYCLOPHOSPHAMIDE [Suspect]
     Active Substance: CYCLOPHOSPHAMIDE
     Indication: Breast cancer female
     Route: 042
  120. CYCLOPHOSPHAMIDE [Suspect]
     Active Substance: CYCLOPHOSPHAMIDE
     Route: 065

REACTIONS (12)
  - Atelectasis [Recovered/Resolved]
  - Cough [Recovered/Resolved]
  - Gastrointestinal disorder [Recovered/Resolved]
  - Hypoxia [Recovered/Resolved]
  - Computerised tomogram thorax abnormal [Recovered/Resolved]
  - Dyspnoea [Recovered/Resolved]
  - Computerised tomogram thorax [Recovered/Resolved]
  - Pyrexia [Recovered/Resolved]
  - Rash [Recovered/Resolved]
  - Fatigue [Recovered/Resolved]
  - Nausea [Recovered/Resolved]
  - Off label use [Recovered/Resolved]
